FAERS Safety Report 4342275-3 (Version None)
Quarter: 2004Q2

REPORT INFORMATION
  Report Type: 
  Country: None (occurrence: None)
  Receive Date: 20040415
  Receipt Date: 20040406
  Transmission Date: 20050107
  Serious: Yes (Disabling, Other)
  Sender: FDA-Public Use
  Company Number: ZONI001195

PATIENT
  Age: 13 Year
  Sex: Male
  Weight: 67.586 kg

DRUGS (6)
  1. ZONEGRAN (ZONISAMIDE) [Suspect]
     Indication: PAIN
     Dosage: 500 MG DAILY PO
     Route: 048
     Dates: start: 20030615, end: 20030829
  2. TEGRETOL [Concomitant]
  3. RESTORIL [Concomitant]
  4. WELLBUTRIN [Concomitant]
  5. CARDURA [Concomitant]
  6. GABITRIL [Concomitant]

REACTIONS (10)
  - ABNORMAL BEHAVIOUR [None]
  - AGITATION [None]
  - ANGER [None]
  - FEAR [None]
  - FEELING ABNORMAL [None]
  - HALLUCINATIONS, MIXED [None]
  - INSOMNIA [None]
  - PARANOIA [None]
  - PSYCHOTIC DISORDER [None]
  - STRESS SYMPTOMS [None]
